FAERS Safety Report 4977891-9 (Version None)
Quarter: 2006Q2

REPORT INFORMATION
  Report Type: 
  Country: None (occurrence: None)
  Receive Date: 20060420
  Receipt Date: 20050627
  Transmission Date: 20061013
  Serious: Yes (Hospitalization)
  Sender: FDA-Public Use
  Company Number: US-MERCK-0506USA03789B1

PATIENT
  Age: 6 Day
  Sex: Female
  Weight: 2 kg

DRUGS (2)
  1. SINGULAIR [Suspect]
     Indication: SINUSITIS
     Dates: start: 20040101
  2. SYNTHROID [Concomitant]
     Indication: HYPOTHYROIDISM

REACTIONS (3)
  - DRUG EXPOSURE DURING PREGNANCY [None]
  - JAUNDICE [None]
  - JAUNDICE NEONATAL [None]
